FAERS Safety Report 24665901 (Version 1)
Quarter: 2024Q4

REPORT INFORMATION
  Report Type: Spontaneous
  Country: CN (occurrence: CN)
  Receive Date: 20241126
  Receipt Date: 20241126
  Transmission Date: 20250115
  Serious: Yes (Other)
  Sender: FRESENIUS KABI
  Company Number: CN-FreseniusKabi-FK202417362

PATIENT
  Age: 20 Year
  Sex: Female
  Weight: 65 kg

DRUGS (1)
  1. PROPOFOL [Suspect]
     Active Substance: PROPOFOL
     Indication: General anaesthesia
     Dosage: FORM OF ADMINISTRATION: INJECTION
     Route: 040
     Dates: start: 20241119, end: 20241119

REACTIONS (1)
  - Seizure like phenomena [Recovering/Resolving]

NARRATIVE: CASE EVENT DATE: 20241119
